FAERS Safety Report 24024805 (Version 1)
Quarter: 2024Q2

REPORT INFORMATION
  Report Type: Report from Study
  Country: US (occurrence: US)
  Receive Date: 20240628
  Receipt Date: 20240628
  Transmission Date: 20240716
  Serious: No
  Sender: FDA-Public Use
  Company Number: US-ROCHE-3489555

PATIENT
  Age: 71 Year
  Sex: Female

DRUGS (16)
  1. ALECENSA [Suspect]
     Active Substance: ALECTINIB HYDROCHLORIDE
     Indication: Lung neoplasm malignant
     Dosage: 150 MG: STRENGHT?4 CAPSULES ORALLY TWICE A DAY.
     Route: 048
  2. ALECENSA [Suspect]
     Active Substance: ALECTINIB HYDROCHLORIDE
     Indication: Metastases to central nervous system
  3. ALECENSA [Suspect]
     Active Substance: ALECTINIB HYDROCHLORIDE
     Indication: Dysphagia
  4. CARAFATE [Concomitant]
     Active Substance: SUCRALFATE
     Dosage: 1 G ORAL TABLET QID
  5. ELIQUIS [Concomitant]
     Active Substance: APIXABAN
     Dosage: 5 MG ORAL TABLET , BID
  6. ISOSORBIDE MONONITRATE [Concomitant]
     Active Substance: ISOSORBIDE MONONITRATE
     Dosage: 30 MG TABLET ORAL DAILY
  7. LEVOTHYROXINE [Concomitant]
     Active Substance: LEVOTHYROXINE\LEVOTHYROXINE SODIUM
     Dosage: 100 MCG TABLET ORAL DAILY
  8. LIOTHYRONINE [Concomitant]
     Active Substance: LIOTHYRONINE
     Dosage: 5 MCG ORAL TABLET DAILY
  9. SODIUM CHLORIDE [Concomitant]
     Active Substance: SODIUM CHLORIDE
     Dosage: 0.9 % 1,000 ML
  10. NITROGLYCERIN [Concomitant]
     Active Substance: NITROGLYCERIN
     Dosage: 0.4 MG SUBLINGUAL TABLET
  11. PANTOPRAZOLE [Concomitant]
     Active Substance: PANTOPRAZOLE
     Dosage: 40 MG ORAL DELAYED RELEASE TABLET 3 TIMES IN A DAY.
  12. PLAVIX [Concomitant]
     Active Substance: CLOPIDOGREL BISULFATE
     Dosage: 75 MG ORAL TABLET DAILY
  13. PRALUENT [Concomitant]
     Active Substance: ALIROCUMAB
     Dosage: 75 MG/ML ONCE IN 2 WEEKS
  14. RANOLAZINE [Concomitant]
     Active Substance: RANOLAZINE
     Dosage: 500 MG ORAL TABLET 3 TIMES IN DAY
  15. TYLENOL EXTRA STRENGTH [Concomitant]
     Active Substance: ACETAMINOPHEN
     Dosage: 500 MG ORAL TABLET
  16. ZOFRAN [Concomitant]
     Active Substance: ONDANSETRON HYDROCHLORIDE
     Dosage: 4 MG ORAL TABLET

REACTIONS (2)
  - Bradycardia [Unknown]
  - Nausea [Unknown]
